FAERS Safety Report 4951133-2 (Version None)
Quarter: 2006Q1

REPORT INFORMATION
  Report Type: 
  Country: None (occurrence: None)
  Receive Date: 20060317
  Receipt Date: 20060224
  Transmission Date: 20060701
  Serious: Yes (Hospitalization, Disabling)
  Sender: FDA-Public Use
  Company Number: JP_050907547

PATIENT
  Age: 74 Year
  Sex: Female
  Weight: 35 kg

DRUGS (8)
  1. EVISTA [Suspect]
     Indication: OSTEOPOROSIS POSTMENOPAUSAL
     Dosage: 60 MG DAILY (1/D) ORAL
     Route: 048
     Dates: start: 20050323, end: 20050509
  2. PREDNISOLONE [Concomitant]
  3. ONON (PRANLUKAST) [Concomitant]
  4. NIZATIDINE [Concomitant]
  5. MAGNESIUM OXIDE [Concomitant]
  6. DIOVAN [Concomitant]
  7. NORVASC [Concomitant]
  8. THEO-DUR [Concomitant]

REACTIONS (6)
  - CAROTID ARTERY ATHEROMA [None]
  - CEREBRAL ARTERIOSCLEROSIS [None]
  - CEREBRAL ARTERY THROMBOSIS [None]
  - CEREBRAL INFARCTION [None]
  - DIABETES MELLITUS [None]
  - PNEUMONIA STAPHYLOCOCCAL [None]
